FAERS Safety Report 11139123 (Version 2)
Quarter: 2016Q2

REPORT INFORMATION
  Report Type: Report from Study
  Country: US (occurrence: US)
  Receive Date: 20150527
  Receipt Date: 20160516
  Transmission Date: 20160815
  Serious: No
  Sender: FDA-Public Use
  Company Number: US-MALLINCKRODT-T201404393

PATIENT
  Sex: Female

DRUGS (1)
  1. REPOSITORY CORTICOTROPIN INJECTION [Suspect]
     Active Substance: CORTICOTROPIN
     Indication: DERMATOMYOSITIS
     Dosage: 40 UNITS TWICE WKLY
     Route: 058
     Dates: start: 20140927, end: 20151018

REACTIONS (7)
  - Cushingoid [Unknown]
  - Dizziness [Unknown]
  - Asthenia [Unknown]
  - Nasal congestion [Unknown]
  - Drug ineffective [Not Recovered/Not Resolved]
  - Fat redistribution [Unknown]
  - Fatigue [Unknown]
